FAERS Safety Report 7821799-8 (Version None)
Quarter: 2011Q4

REPORT INFORMATION
  Report Type: 
  Country: None (occurrence: None)
  Receive Date: 20111018
  Receipt Date: 20110721
  Transmission Date: 20120403
  Serious: No
  Sender: FDA-Public Use
  Company Number: US-ASTRAZENECA-2011SE43426

PATIENT
  Age: 60 Year
  Sex: Female
  Weight: 86.2 kg

DRUGS (7)
  1. EVISTA [Concomitant]
  2. WELLBUTRIN [Concomitant]
  3. ZOLPIDEM [Concomitant]
  4. NASONEX [Concomitant]
  5. FISH OIL [Concomitant]
  6. SYMBICORT [Suspect]
     Indication: ASTHMA
     Dosage: 160 MCG, TWO TIMES A DAY
     Route: 055
     Dates: start: 20110720
  7. VITAMIN TAB [Concomitant]

REACTIONS (3)
  - COUGH [None]
  - DYSGEUSIA [None]
  - DRY MOUTH [None]
